FAERS Safety Report 10278513 (Version 1)
Quarter: 2014Q3

REPORT INFORMATION
  Report Type: Spontaneous
  Country: IT (occurrence: IT)
  Receive Date: 20140704
  Receipt Date: 20140704
  Transmission Date: 20150326
  Serious: Yes (Death, Other)
  Sender: FDA-Public Use
  Company Number: PHHY2014IT080706

PATIENT
  Age: 90 Year
  Sex: Female

DRUGS (7)
  1. MORPHINE [Suspect]
     Active Substance: MORPHINE
     Indication: CHEST DISCOMFORT
  2. METHYLPREDNISOLONE [Suspect]
     Active Substance: METHYLPREDNISOLONE
     Indication: REEXPANSION PULMONARY OEDEMA
     Route: 042
  3. LEVOFLOXACINA [Suspect]
     Active Substance: LEVOFLOXACIN
     Route: 042
  4. FUROSEMIDE. [Suspect]
     Active Substance: FUROSEMIDE
     Indication: PLEURAL EFFUSION
  5. DIURETICS [Suspect]
     Active Substance: UNSPECIFIED INGREDIENT
  6. DIGOXIN. [Suspect]
     Active Substance: DIGOXIN
     Indication: TACHYARRHYTHMIA
  7. OXYGEN. [Concomitant]
     Active Substance: OXYGEN

REACTIONS (3)
  - Cardiogenic shock [Unknown]
  - Drug ineffective [Unknown]
  - Death [Fatal]
